FAERS Safety Report 25131031 (Version 1)
Quarter: 2025Q1

REPORT INFORMATION
  Report Type: Spontaneous
  Country: US (occurrence: None)
  Receive Date: 20250327
  Receipt Date: 20250327
  Transmission Date: 20250409
  Serious: Yes (Death)
  Sender: FDA-CTU
  Company Number: None

PATIENT
  Age: 46 Year
  Sex: Female

DRUGS (1)
  1. TADALAFIL [Suspect]
     Active Substance: TADALAFIL
     Indication: Pulmonary arterial hypertension
     Dosage: FREQUENCY : DAILY;?STRENGTH: 20
     Route: 048
     Dates: start: 20241206

REACTIONS (2)
  - Cardiac disorder [None]
  - Lung disorder [None]

NARRATIVE: CASE EVENT DATE: 20250212
